FAERS Safety Report 13503560 (Version 2)
Quarter: 2017Q2

REPORT INFORMATION
  Report Type: Spontaneous
  Country: SE (occurrence: SE)
  Receive Date: 20170502
  Receipt Date: 20170629
  Transmission Date: 20170830
  Serious: Yes (Other)
  Sender: FDA-Public Use
  Company Number: SE-PFIZER INC-2017184727

PATIENT
  Age: 26 Year
  Sex: Male

DRUGS (1)
  1. METHOTREXATE PFIZER [Suspect]
     Active Substance: METHOTREXATE
     Indication: ACUTE LYMPHOCYTIC LEUKAEMIA
     Dosage: UNK
     Dates: end: 20161028

REACTIONS (1)
  - Encephalopathy [Unknown]
